FAERS Safety Report 4978148-2 (Version None)
Quarter: 2006Q2

REPORT INFORMATION
  Report Type: 
  Country: None (occurrence: None)
  Receive Date: 20060420
  Receipt Date: 20050623
  Transmission Date: 20061013
  Serious: Yes (Hospitalization, Disabling)
  Sender: FDA-Public Use
  Company Number: US-ROCHE-408909

PATIENT
  Age: 21 Year
  Sex: Male

DRUGS (3)
  1. ACCUTANE [Suspect]
     Route: 048
     Dates: start: 19880615, end: 19900615
  2. ACCUTANE [Suspect]
     Route: 048
     Dates: start: 19910615, end: 19930615
  3. VENTOLIN [Concomitant]
     Indication: ASTHMA
     Route: 055

REACTIONS (41)
  - ANKLE FRACTURE [None]
  - ANOREXIA [None]
  - ARTHROPOD BITE [None]
  - ASTHMA [None]
  - BRONCHITIS [None]
  - COLITIS [None]
  - COLITIS ULCERATIVE [None]
  - CONDITION AGGRAVATED [None]
  - CONJUNCTIVITIS [None]
  - CONTUSION [None]
  - DERMATITIS [None]
  - DRUG INEFFECTIVE [None]
  - DRY SKIN [None]
  - ECZEMA [None]
  - ERYTHEMA [None]
  - GASTROENTERITIS BACTERIAL [None]
  - GASTROINTESTINAL DISORDER [None]
  - HAEMORRHOIDS [None]
  - INFECTED CYST [None]
  - INFLAMMATORY BOWEL DISEASE [None]
  - INTESTINAL HAEMORRHAGE [None]
  - IRRITABLE BOWEL SYNDROME [None]
  - JOINT SPRAIN [None]
  - JOINT STIFFNESS [None]
  - LIMB INJURY [None]
  - MASS [None]
  - MULTI-ORGAN DISORDER [None]
  - OEDEMA PERIPHERAL [None]
  - PHOTOSENSITIVITY REACTION [None]
  - PLANTAR FASCIITIS [None]
  - PNEUMONIA [None]
  - RASH [None]
  - RASH MACULO-PAPULAR [None]
  - RECTAL HAEMORRHAGE [None]
  - SKIN HYPERPIGMENTATION [None]
  - SOMNOLENCE [None]
  - STRESS [None]
  - TIBIA FRACTURE [None]
  - UPPER RESPIRATORY TRACT INFECTION [None]
  - VISION BLURRED [None]
  - WEIGHT INCREASED [None]
